FAERS Safety Report 22144010 (Version 1)
Quarter: 2023Q1

REPORT INFORMATION
  Report Type: Spontaneous
  Country: US (occurrence: US)
  Receive Date: 20230327
  Receipt Date: 20230327
  Transmission Date: 20230418
  Serious: No
  Sender: FDA-Public Use
  Company Number: US-JNJFOC-20230350519

PATIENT
  Age: 12 Year
  Sex: Male
  Weight: 45.400 kg

DRUGS (1)
  1. CONCERTA [Suspect]
     Active Substance: METHYLPHENIDATE HYDROCHLORIDE
     Indication: Attention deficit hyperactivity disorder
     Route: 065

REACTIONS (4)
  - Disturbance in attention [Unknown]
  - Educational problem [Unknown]
  - Adverse event [Unknown]
  - Product availability issue [Unknown]
